FAERS Safety Report 11258553 (Version 1)
Quarter: 2015Q3

REPORT INFORMATION
  Report Type: Spontaneous
  Country: FR (occurrence: None)
  Receive Date: 20150708
  Receipt Date: 20150708
  Transmission Date: 20151125
  Serious: Yes (Hospitalization)
  Sender: FDA-Public Use
  Company Number: FR-ZYDUS-008557

PATIENT
  Age: 84 Year
  Sex: Male

DRUGS (3)
  1. HYDROCHLOROTHIAZIDE (HYDROCHLOROTHIAZIDE) [Suspect]
     Active Substance: HYDROCHLOROTHIAZIDE
  2. RAMIPRIL (RAMIPRIL) [Suspect]
     Active Substance: RAMIPRIL
     Dosage: 2.50-MG-
  3. AMLODIPINE [Suspect]
     Active Substance: AMLODIPINE BESYLATE
     Indication: HYPERTENSION
     Dosage: 5.00-MG-1.0DAYS

REACTIONS (3)
  - Hypotension [None]
  - Pubis fracture [None]
  - Fall [None]
